FAERS Safety Report 20220497 (Version 2)
Quarter: 2022Q1

REPORT INFORMATION
  Report Type: Spontaneous
  Country: US (occurrence: US)
  Receive Date: 20211223
  Receipt Date: 20220111
  Transmission Date: 20220423
  Serious: No
  Sender: FDA-Public Use
  Company Number: US-JNJFOC-20211217052

PATIENT
  Sex: Male

DRUGS (2)
  1. TYLENOL [Suspect]
     Active Substance: ACETAMINOPHEN
     Indication: Pain
     Dosage: FEW DAYS
     Route: 065
  2. COVID-19 VACCINE [Concomitant]
     Indication: COVID-19 immunisation
     Route: 065

REACTIONS (1)
  - Drug ineffective [Unknown]
